FAERS Safety Report 19869015 (Version 2)
Quarter: 2021Q4

REPORT INFORMATION
  Report Type: Spontaneous
  Country: TW (occurrence: TW)
  Receive Date: 20210923
  Receipt Date: 20211029
  Transmission Date: 20220303
  Serious: No
  Sender: FDA-Public Use
  Company Number: TW-JNJFOC-20210936115

PATIENT

DRUGS (1)
  1. PREZISTA [Suspect]
     Active Substance: DARUNAVIR ETHANOLATE
     Indication: Product used for unknown indication
     Route: 048

REACTIONS (1)
  - Product packaging issue [Unknown]
